FAERS Safety Report 5890704-6 (Version None)
Quarter: 2008Q3

REPORT INFORMATION
  Report Type: 
  Country: None (occurrence: None)
  Receive Date: 20080922
  Receipt Date: 20080911
  Transmission Date: 20090109
  Serious: Yes (Hospitalization)
  Sender: FDA-Public Use
  Company Number: FR-AVENTIS-200813321FR

PATIENT
  Age: 72 Year
  Sex: Female

DRUGS (21)
  1. LOVENOX [Suspect]
     Route: 058
     Dates: start: 20080606, end: 20080612
  2. TAZOCILLINE [Suspect]
     Route: 042
     Dates: start: 20080609, end: 20080613
  3. NEXIUM [Suspect]
     Route: 048
     Dates: start: 20080602, end: 20080612
  4. VANCOMYCIN HCL [Suspect]
     Route: 042
     Dates: start: 20080604, end: 20080615
  5. TIENAM [Suspect]
     Route: 042
     Dates: start: 20080604, end: 20080616
  6. FUNGIZONE [Suspect]
     Route: 042
     Dates: start: 20080604, end: 20080612
  7. LIPANTHYL [Concomitant]
     Route: 048
     Dates: end: 20080602
  8. STILNOX                            /00914901/ [Concomitant]
     Route: 048
     Dates: start: 20060101
  9. TENORMIN [Concomitant]
     Route: 048
     Dates: start: 20060801
  10. COAPROVEL [Concomitant]
     Route: 048
     Dates: start: 20060801
  11. ZANIDIP [Concomitant]
     Route: 048
     Dates: start: 20060901
  12. MOTILIUM [Concomitant]
     Route: 048
     Dates: start: 20080520, end: 20080602
  13. MYOLASTAN [Concomitant]
     Route: 048
     Dates: start: 20080506, end: 20080602
  14. NEUPOGEN [Concomitant]
     Route: 058
     Dates: start: 20080606
  15. PLITICAN [Concomitant]
     Route: 042
     Dates: start: 20080604
  16. EFFERALGAN                         /00020001/ [Concomitant]
  17. ACUPAN [Concomitant]
  18. TOPALGIC [Concomitant]
  19. LAMALINE                           /00764901/ [Concomitant]
  20. TEMGESIC [Concomitant]
  21. PURSENNIDE                         /00571902/ [Concomitant]

REACTIONS (1)
  - PANCYTOPENIA [None]
